FAERS Safety Report 20099085 (Version 1)
Quarter: 2021Q4

REPORT INFORMATION
  Report Type: Spontaneous
  Country: CO (occurrence: CO)
  Receive Date: 20211122
  Receipt Date: 20211122
  Transmission Date: 20220303
  Serious: No
  Sender: FDA-Public Use
  Company Number: CO-PFIZER INC-202101252920

PATIENT
  Sex: Male

DRUGS (1)
  1. GENOTROPIN [Suspect]
     Active Substance: SOMATROPIN
     Dosage: 0.6 MG (MONDAY WEDNESDAY AND FRIDAY)
     Route: 058
     Dates: start: 20210919

REACTIONS (3)
  - Off label use [Unknown]
  - Wrong technique in device usage process [Unknown]
  - Device leakage [Unknown]

NARRATIVE: CASE EVENT DATE: 20210919
